FAERS Safety Report 6305212-8 (Version None)
Quarter: 2009Q3

REPORT INFORMATION
  Report Type: 
  Country: None (occurrence: None)
  Receive Date: 20090810
  Receipt Date: 20090810
  Transmission Date: 20100115
  Serious: Yes (Other)
  Sender: FDA-Public Use
  Company Number: None

PATIENT
  Sex: Female
  Weight: 147.419 kg

DRUGS (17)
  1. GEODON [Suspect]
     Indication: MAJOR DEPRESSION
     Dosage: 40 MG NOT CURRENTLY TAKEN BU CAUSED SYMPTOMS SEVERAL YEARS
  2. GEODON [Suspect]
     Indication: MAJOR DEPRESSION
     Dosage: 60 MG EVERY 12 HRS BY MOUTH
     Route: 048
  3. ALSOTAKE GEODON [Concomitant]
  4. BUSIPORONE [Concomitant]
  5. BUPROPION HCL [Concomitant]
  6. EFFEXOR [Concomitant]
  7. EFFEXOR [Concomitant]
  8. METFORMIN [Concomitant]
  9. GLIPIZIDE [Concomitant]
  10. LEXOXIL [Concomitant]
  11. FUROSEMIDE [Concomitant]
  12. METOPROLOL [Concomitant]
  13. LIPITOR [Concomitant]
  14. ASPIRIN [Concomitant]
  15. MULTI-VITAMIN [Concomitant]
  16. FISHOIL [Concomitant]
  17. FIBERTABLETS [Concomitant]

REACTIONS (10)
  - ABDOMINAL PAIN UPPER [None]
  - ANXIETY [None]
  - CHILLS [None]
  - HYPERHIDROSIS [None]
  - MUSCULAR WEAKNESS [None]
  - NAUSEA [None]
  - PRODUCT QUALITY ISSUE [None]
  - TREMOR [None]
  - TRISMUS [None]
  - WITHDRAWAL SYNDROME [None]
